FAERS Safety Report 6183878-3 (Version None)
Quarter: 2009Q2

REPORT INFORMATION
  Report Type: 
  Country: None (occurrence: None)
  Receive Date: 20090508
  Receipt Date: 20090430
  Transmission Date: 20091009
  Serious: Yes (Hospitalization)
  Sender: FDA-Public Use
  Company Number: US-ROCHE-630837

PATIENT
  Age: 79 Year
  Sex: Female

DRUGS (4)
  1. BONIVA [Suspect]
     Indication: OSTEOPOROSIS
     Dosage: DURATION REPORTED AS MORE THAN TWO YEARS
     Route: 065
  2. DIGOXIN [Concomitant]
  3. METOPROLOL TARTRATE [Concomitant]
     Dosage: DOSE REGIMEN: 1/2 DOSEFORM TWICE DAILY
  4. WARFARIN SODIUM [Concomitant]
     Dosage: 1 A DAY ON MONDAY AND FRIDAY AND 1/2 ON SATURDAY AND 1/2 ON SUNDAY; RECEIVED FOR YEARS

REACTIONS (3)
  - CHOLECYSTECTOMY [None]
  - PAIN [None]
  - VOMITING [None]
